FAERS Safety Report 23360097 (Version 2)
Quarter: 2024Q1

REPORT INFORMATION
  Report Type: Spontaneous
  Country: FR (occurrence: FR)
  Receive Date: 20240103
  Receipt Date: 20240123
  Transmission Date: 20240410
  Serious: Yes (Death, Life-Threatening, Other)
  Sender: FDA-Public Use
  Company Number: FR-AFSSAPS-TO2023002221

PATIENT
  Age: 34 Year
  Sex: Male
  Weight: 99 kg

DRUGS (19)
  1. QUETIAPINE FUMARATE [Suspect]
     Active Substance: QUETIAPINE FUMARATE
     Indication: Schizophrenia
     Dosage: 300 MILLIGRAM, ONCE A DAY IN THE EVENING
     Route: 048
     Dates: start: 20231130
  2. QUETIAPINE FUMARATE [Suspect]
     Active Substance: QUETIAPINE FUMARATE
     Dosage: 300 MILLIGRAM
     Route: 065
  3. CLOZAPINE [Suspect]
     Active Substance: CLOZAPINE
     Indication: Schizophrenia
     Dosage: 75 MILLIGRAM, ONCE A DAY (2 TABS IN THE MORNING, 1 TAB IN THE EVENING)
     Route: 048
     Dates: start: 20231212
  4. METHYLPHENIDATE HYDROCHLORIDE [Suspect]
     Active Substance: METHYLPHENIDATE HYDROCHLORIDE
     Indication: Product used for unknown indication
     Dosage: 80 MILLIGRAM, ONCE A DAY (2 CP ? 8H, 1 CP ? 10H, 2 CP ? 12H, 1 CP ? 14H, 2 CP ? 16H)
     Route: 048
     Dates: start: 20231205
  5. METHYLPHENIDATE HYDROCHLORIDE [Suspect]
     Active Substance: METHYLPHENIDATE HYDROCHLORIDE
     Indication: Product used for unknown indication
     Dosage: 54 MILLIGRAM, ONCE A DAY (1 TEASPOON IN THE MORNING)
     Route: 048
     Dates: start: 20231204
  6. TRIMEPRAZINE [Suspect]
     Active Substance: TRIMEPRAZINE
     Indication: Product used for unknown indication
     Dosage: 40 MILLIGRAM, ONCE A DAY AT BEDTIME (ORAL SOLUTION IN DROPS)
     Route: 048
     Dates: start: 20231130
  7. TROSPIUM CHLORIDE [Suspect]
     Active Substance: TROSPIUM CHLORIDE
     Indication: Product used for unknown indication
     Dosage: 20 MILLIGRAM, ONCE A DAY (1 TEASPOON IN THE MORNING)
     Route: 048
     Dates: start: 20231130
  8. LOXAPINE [Suspect]
     Active Substance: LOXAPINE
     Indication: Schizophrenia
     Dosage: 50 MILLIGRAM, ONCE A DAY (50 TO 100 MG/DAY IF NECESSARY)
     Route: 048
     Dates: start: 20231130, end: 20231213
  9. LOXAPINE [Suspect]
     Active Substance: LOXAPINE
     Dosage: 40 MILLIGRAM (IN THE MORNING, AT NOON, IN THE EVENING AND AT NIGHT IF NECESSARY)
     Route: 048
     Dates: start: 20231214
  10. LEVOMEPROMAZINE [Suspect]
     Active Substance: LEVOMEPROMAZINE
     Indication: Schizophrenia
     Dosage: 60 GTT DROPS, ONCE A DAY AT NIGHT
     Route: 048
     Dates: start: 20231130
  11. FOLIC ACID [Concomitant]
     Active Substance: FOLIC ACID
     Indication: Product used for unknown indication
     Dosage: 5 MILLIGRAM, ONCE A DAY, (1 TAB IN THE MORNING, ORAL)
     Route: 048
  12. VALIUM [Concomitant]
     Active Substance: DIAZEPAM
     Indication: Product used for unknown indication
     Dosage: UNK, (1% ORAL SOLUTION, 30 DROPS MORNING, NOON, NIGHT)
     Route: 048
  13. DUPHALAC [Concomitant]
     Active Substance: LACTULOSE
     Indication: Product used for unknown indication
     Dosage: UNK, TWO TIMES A DAY, (10G/15ML, 1 SACHET IN THE MORNING AND EVENING)
     Route: 048
  14. VENLAFAXINE [Concomitant]
     Active Substance: VENLAFAXINE HYDROCHLORIDE
     Indication: Product used for unknown indication
     Dosage: 75 MILLIGRAM, (2 TABS IN THE MORNING, 1 AT MIDDAY, ORAL ROUTE)
     Route: 048
  15. POLYETHYLENE GLYCOLS [Concomitant]
     Active Substance: POLYETHYLENE GLYCOLS
     Indication: Product used for unknown indication
     Dosage: 2 DOSAGE FORM, AS NECESSARY
     Route: 048
  16. DOLIPRANE [Concomitant]
     Active Substance: ACETAMINOPHEN
     Indication: Product used for unknown indication
     Dosage: 500 MILLIGRAM, (2 TABS IN THE MORNING, NOON AND EVENING IF NECESSARY)
     Route: 048
  17. OLANZAPINE [Concomitant]
     Active Substance: OLANZAPINE
     Indication: Product used for unknown indication
     Dosage: 5 MILLIGRAM, ONCE A DAY, (1 TAB IN THE EVENING)
     Route: 048
  18. ZOLPIDEM TARTRATE [Concomitant]
     Active Substance: ZOLPIDEM TARTRATE
     Indication: Product used for unknown indication
     Dosage: 10 MILLIGRAM, AT BED TIME
     Route: 048
  19. ARTANE [Concomitant]
     Active Substance: TRIHEXYPHENIDYL HYDROCHLORIDE
     Indication: Product used for unknown indication
     Dosage: 5 MILLIGRAM, ONCE A DAY, (1 TAB IN THE EVENING, ORA)
     Route: 048

REACTIONS (1)
  - Large intestinal obstruction [Fatal]

NARRATIVE: CASE EVENT DATE: 20231214
